FAERS Safety Report 5766669-4 (Version None)
Quarter: 2008Q2

REPORT INFORMATION
  Report Type: 
  Country: None (occurrence: None)
  Receive Date: 20080610
  Receipt Date: 20080610
  Transmission Date: 20081010
  Serious: Yes (Other)
  Sender: FDA-Public Use
  Company Number: None

PATIENT
  Age: 58 Year
  Sex: Female
  Weight: 81.6475 kg

DRUGS (1)
  1. SODIUM POLYSTYRENE 15GM/60MLS SUSP [Suspect]
     Indication: HYPERKALAEMIA
     Dosage: 15 GM 1X PO
     Route: 048
     Dates: start: 20030525, end: 20080527

REACTIONS (1)
  - NO ADVERSE EVENT [None]
